FAERS Safety Report 8029988-7 (Version None)
Quarter: 2012Q1

REPORT INFORMATION
  Report Type: 
  Country: None (occurrence: None)
  Receive Date: 20120105
  Receipt Date: 20111222
  Transmission Date: 20120608
  Serious: Yes (Other)
  Sender: FDA-Public Use
  Company Number: TPA2011A08711

PATIENT
  Sex: Male

DRUGS (1)
  1. ACTOS [Suspect]
     Dates: start: 20070101, end: 20110101

REACTIONS (1)
  - BLADDER CANCER [None]
